FAERS Safety Report 8273816-1 (Version None)
Quarter: 2012Q2

REPORT INFORMATION
  Report Type: 
  Country: None (occurrence: None)
  Receive Date: 20120411
  Receipt Date: 20120403
  Transmission Date: 20120825
  Serious: Yes (Hospitalization, Other)
  Sender: FDA-Public Use
  Company Number: PHHY2012BR029119

PATIENT
  Sex: Male

DRUGS (4)
  1. SINVALIP [Concomitant]
     Indication: BLOOD CHOLESTEROL INCREASED
     Dosage: 20 MG, UNK
  2. EXFORGE [Suspect]
     Indication: HYPERTENSION
     Dosage: 1 DF (320/5 MG), A DAY
     Route: 048
     Dates: start: 20120101
  3. AZUKON [Concomitant]
     Indication: DIABETES MELLITUS
     Dosage: 30 MG, UNK
  4. DEPAXAN [Concomitant]
     Indication: EMOTIONAL DISORDER

REACTIONS (2)
  - BLOOD GLUCOSE INCREASED [None]
  - GASTROINTESTINAL CARCINOMA [None]
